FAERS Safety Report 13009161 (Version 2)
Quarter: 2016Q4

REPORT INFORMATION
  Report Type: Spontaneous
  Country: JP (occurrence: JP)
  Receive Date: 20161208
  Receipt Date: 20161228
  Transmission Date: 20170207
  Serious: Yes (Disabling)
  Sender: FDA-Public Use
  Company Number: JP-GUERBET LLC-1060568

PATIENT
  Age: 69 Year
  Sex: Male

DRUGS (2)
  1. HISTOACRYL [Concomitant]
     Active Substance: ENBUCRILATE
     Route: 013
     Dates: start: 20110830, end: 20110830
  2. LIPIODOL [Suspect]
     Active Substance: ETHIODIZED OIL
     Indication: THERAPEUTIC EMBOLISATION
     Route: 013
     Dates: start: 20110830, end: 20110830

REACTIONS (4)
  - Off label use [Unknown]
  - Monoplegia [Recovering/Resolving]
  - Pain in extremity [Recovering/Resolving]
  - Peroneal nerve palsy [Recovering/Resolving]

NARRATIVE: CASE EVENT DATE: 20110830
